FAERS Safety Report 5245946-X (Version None)
Quarter: 2007Q1

REPORT INFORMATION
  Report Type: 
  Country: None (occurrence: None)
  Receive Date: 20070220
  Receipt Date: 20070201
  Transmission Date: 20070707
  Serious: Yes (Life-Threatening, Other)
  Sender: FDA-Public Use
  Company Number: 15226

PATIENT
  Age: 56 Year
  Sex: Female

DRUGS (6)
  1. PACLITAXEL [Suspect]
     Indication: OVARIAN CANCER
     Dosage: 175 MG/M2 DAILY IV
     Route: 042
     Dates: start: 20061025, end: 20061025
  2. PACLITAXEL [Suspect]
     Indication: OVARIAN CANCER
     Dosage: 175 MG/M2 DAILY IV
     Route: 042
     Dates: start: 20061115, end: 20061115
  3. FORTECORTIN /00016001/. MFR: NOT SPECIFIED [Concomitant]
  4. KEVATRIL [Concomitant]
  5. TAVEGIL /00137201/. MFR: NOT SPECIFIED [Concomitant]
  6. RANITIDINE [Concomitant]

REACTIONS (4)
  - BACK PAIN [None]
  - FLUSHING [None]
  - PHARMACEUTICAL PRODUCT COMPLAINT [None]
  - RESPIRATORY DISTRESS [None]
